FAERS Safety Report 7216290-6 (Version None)
Quarter: 2011Q1

REPORT INFORMATION
  Report Type: 
  Country: None (occurrence: None)
  Receive Date: 20110105
  Receipt Date: 20110105
  Transmission Date: 20110831
  Serious: Yes (Other)
  Sender: FDA-Public Use
  Company Number: None

PATIENT
  Age: 27 Year
  Sex: Male
  Weight: 117.9352 kg

DRUGS (2)
  1. DARVOCET-N 100 [Suspect]
  2. PROPOXYPHENE HYDROCHLORIDE [Suspect]
     Dosage: 1 PILL AS NEEDED
     Dates: start: 20100801, end: 20101130

REACTIONS (1)
  - DIZZINESS [None]
